FAERS Safety Report 5746828-7 (Version None)
Quarter: 2008Q2

REPORT INFORMATION
  Report Type: 
  Country: None (occurrence: None)
  Receive Date: 20080522
  Receipt Date: 20080516
  Transmission Date: 20081010
  Serious: No
  Sender: FDA-Public Use
  Company Number: JP-BAXTER-2008BH005074

PATIENT
  Age: 20 Year
  Sex: Male
  Weight: 52 kg

DRUGS (2)
  1. RECOMBINATE [Suspect]
     Indication: FACTOR VIII DEFICIENCY
     Route: 042
     Dates: start: 20030226, end: 20070201
  2. OCTOCOG ALFA [Concomitant]
     Indication: FACTOR VIII DEFICIENCY
     Route: 042
     Dates: end: 20021007

REACTIONS (2)
  - ANTI-HBS ANTIBODY POSITIVE [None]
  - HEPATITIS C ANTIBODY POSITIVE [None]
